FAERS Safety Report 9927858 (Version 2)
Quarter: 2014Q1

REPORT INFORMATION
  Report Type: Spontaneous
  Country: JP (occurrence: None)
  Receive Date: 20140221
  Receipt Date: 20140304
  Transmission Date: 20141002
  Serious: No
  Sender: FDA-Public Use
  Company Number: B0969141A

PATIENT
  Age: 24 Year
  Sex: Female

DRUGS (1)
  1. PAROXETINE HYDROCHLORIDE [Suspect]
     Indication: DEPRESSION
     Route: 048

REACTIONS (5)
  - Lacrimation increased [None]
  - Restlessness [None]
  - Violence-related symptom [None]
  - Suicidal ideation [None]
  - Impulsive behaviour [None]
